FAERS Safety Report 20353447 (Version 1)
Quarter: 2022Q1

REPORT INFORMATION
  Report Type: Spontaneous
  Country: US (occurrence: US)
  Receive Date: 20220119
  Receipt Date: 20220119
  Transmission Date: 20220423
  Serious: Yes (Other)
  Sender: FDA-Public Use
  Company Number: US-BIOVITRUM-2022US00495

PATIENT
  Age: 0 Year
  Sex: Female
  Weight: 6 kg

DRUGS (13)
  1. SYNAGIS [Suspect]
     Active Substance: PALIVIZUMAB
     Indication: Illness
     Route: 030
     Dates: start: 202111
  2. POLY-VITA WITH IRON [Concomitant]
     Dosage: 10 MG/ML DROPS
  3. CLONIDINE HYDROCHLORIDE [Concomitant]
     Active Substance: CLONIDINE HYDROCHLORIDE
  4. LEVETIRACETAM [Concomitant]
     Active Substance: LEVETIRACETAM
  5. GLYCOPYRROLATE [Concomitant]
     Active Substance: GLYCOPYRROLATE
  6. DIAZEPAM [Concomitant]
     Active Substance: DIAZEPAM
  7. SYNAGIS [Suspect]
     Active Substance: PALIVIZUMAB
     Indication: Hypoxic-ischaemic encephalopathy
  8. SYNAGIS [Suspect]
     Active Substance: PALIVIZUMAB
     Indication: Skull malformation
  9. SYNAGIS [Suspect]
     Active Substance: PALIVIZUMAB
     Indication: Premature baby
  10. SYNAGIS [Suspect]
     Active Substance: PALIVIZUMAB
     Indication: Electrocardiogram abnormal
  11. SYNAGIS [Suspect]
     Active Substance: PALIVIZUMAB
     Indication: Dyskinesia
  12. SYNAGIS [Suspect]
     Active Substance: PALIVIZUMAB
     Indication: Premature separation of placenta
  13. EPINEPHRINE [Concomitant]
     Active Substance: EPINEPHRINE

REACTIONS (2)
  - Bronchiolitis [Unknown]
  - Off label use [Unknown]

NARRATIVE: CASE EVENT DATE: 20211101
